FAERS Safety Report 16696326 (Version 2)
Quarter: 2020Q2

REPORT INFORMATION
  Report Type: Spontaneous
  Country: US (occurrence: US)
  Receive Date: 20190813
  Receipt Date: 20200408
  Transmission Date: 20200713
  Serious: No
  Sender: FDA-Public Use
  Company Number: US-FRESENIUS MEDICAL CARE RENAL THERAPIES GROUP-FMC-1907-000918

PATIENT
  Age: 69 Year
  Sex: Male

DRUGS (17)
  1. DELFLEX WITH DEXTROSE 1.5% LOW MAGNESIUM LOW CALCIUM [Suspect]
     Active Substance: CALCIUM CHLORIDE\DEXTROSE\MAGNESIUM CHLORIDE\SODIUM CHLORIDE\SODIUM LACTATE
     Indication: END STAGE RENAL DISEASE
     Dosage: FILL VOLUME = 900-1000 ML, 5 EXCHANGES, NO LAST FILL, NO DAYTIME EXCHANGE
     Route: 033
  2. HYDRALAZINE [Concomitant]
     Active Substance: HYDRALAZINE HYDROCHLORIDE
  3. VITAMIN B12 [Concomitant]
     Active Substance: CYANOCOBALAMIN
  4. DELFLEX WITH DEXTROSE 4.25% LOW MAGNESIUM LOW CALCIUM [Suspect]
     Active Substance: CALCIUM CHLORIDE\DEXTROSE\MAGNESIUM CHLORIDE\SODIUM CHLORIDE\SODIUM LACTATE
     Indication: END STAGE RENAL DISEASE
     Dosage: FILL VOLUME = 900-1000 ML, 5 EXCHANGES, NO LAST FILL, NO DAYTIME EXCHANGE
     Route: 033
  5. COQ10 [Concomitant]
     Active Substance: UBIDECARENONE
  6. PROTONIX [Concomitant]
     Active Substance: PANTOPRAZOLE SODIUM
  7. TORSEMIDE. [Concomitant]
     Active Substance: TORSEMIDE
  8. VITAMIN D-2 [Concomitant]
  9. GENTAMYCIN [Concomitant]
     Active Substance: GENTAMICIN
  10. LINZESS [Concomitant]
     Active Substance: LINACLOTIDE
  11. PLAVIX [Concomitant]
     Active Substance: CLOPIDOGREL BISULFATE
  12. ZOCOR [Concomitant]
     Active Substance: SIMVASTATIN
  13. DELFLEX WITH DEXTROSE 2.5% LOW MAGNESIUM LOW CALCIUM [Suspect]
     Active Substance: CALCIUM CHLORIDE\DEXTROSE\MAGNESIUM CHLORIDE\SODIUM CHLORIDE\SODIUM LACTATE
     Indication: END STAGE RENAL DISEASE
     Dosage: FILL VOLUME = 900-1000 ML, 5 EXCHANGES, NO LAST FILL, NO DAYTIME EXCHANGE
     Route: 033
  14. NITROSTAT [Concomitant]
     Active Substance: NITROGLYCERIN
  15. ISOSORBIDE. [Concomitant]
     Active Substance: ISOSORBIDE
  16. CALCIUM ACETATE. [Concomitant]
     Active Substance: CALCIUM ACETATE
  17. CARVEDILOL. [Concomitant]
     Active Substance: CARVEDILOL

REACTIONS (1)
  - Abdominal hernia [Unknown]
